FAERS Safety Report 14643336 (Version 2)
Quarter: 2018Q2

REPORT INFORMATION
  Report Type: Spontaneous
  Country: JP (occurrence: JP)
  Receive Date: 20180315
  Receipt Date: 20180423
  Transmission Date: 20180711
  Serious: Yes (Other)
  Sender: FDA-Public Use
  Company Number: JP-PFIZER INC-2018107395

PATIENT
  Age: 5 Decade
  Sex: Female

DRUGS (7)
  1. MUCODYNE [Suspect]
     Active Substance: CARBOCYSTEINE
     Indication: OTITIS MEDIA ACUTE
     Dosage: UNK
     Route: 048
     Dates: start: 20180205, end: 20180205
  2. BANAN [Suspect]
     Active Substance: CEFPODOXIME PROXETIL
     Indication: OTITIS MEDIA ACUTE
     Dosage: UNK
     Route: 048
     Dates: start: 20180205, end: 20180205
  3. INAVIR (LANINAMIVIR OCTANOATE MONOHYDRATE) [Suspect]
     Active Substance: LANINAMIVIR OCTANOATE MONOHYDRATE
     Indication: INFLUENZA
     Dosage: 40 MG, QD
     Route: 055
     Dates: start: 20180202, end: 20180202
  4. LOXONIN [Suspect]
     Active Substance: LOXOPROFEN SODIUM
     Indication: INFLUENZA
  5. LOXONIN [Suspect]
     Active Substance: LOXOPROFEN SODIUM
     Indication: OTITIS MEDIA ACUTE
     Dosage: UNK
     Route: 048
     Dates: start: 20180202, end: 20180205
  6. CALONAL [Suspect]
     Active Substance: ACETAMINOPHEN
     Indication: INFLUENZA
     Dosage: UNK
     Route: 048
     Dates: start: 20180202
  7. DELLEGRA [Suspect]
     Active Substance: FEXOFENADINE HYDROCHLORIDE\PSEUDOEPHEDRINE HYDROCHLORIDE
     Indication: OTITIS MEDIA ACUTE
     Dosage: UNK
     Route: 048
     Dates: start: 20180205, end: 20180205

REACTIONS (5)
  - Platelet count decreased [Recovered/Resolved]
  - Hepatic function abnormal [Recovered/Resolved]
  - Diarrhoea [Recovered/Resolved]
  - White blood cell count decreased [Recovered/Resolved]
  - Hyperkalaemia [Recovered/Resolved]

NARRATIVE: CASE EVENT DATE: 20180205
